FAERS Safety Report 4793670-X (Version None)
Quarter: 2005Q4

REPORT INFORMATION
  Report Type: 
  Country: None (occurrence: None)
  Receive Date: 20051006
  Receipt Date: 20050923
  Transmission Date: 20060501
  Serious: Yes (Other)
  Sender: FDA-Public Use
  Company Number: 2005133873

PATIENT
  Sex: Female
  Weight: 56.6996 kg

DRUGS (3)
  1. DETROL LA [Suspect]
     Indication: HYPERTONIC BLADDER
     Dosage: 4 MG (4 MG, 1 IN 1 D), ORAL
     Route: 048
     Dates: start: 20031001, end: 20050328
  2. ENALAPRIL MALEATE [Concomitant]
  3. EVISTA [Concomitant]

REACTIONS (7)
  - ABDOMINAL RIGIDITY [None]
  - FLATULENCE [None]
  - GROIN PAIN [None]
  - HERNIA REPAIR [None]
  - HYPERTENSION [None]
  - OSTEOPOROSIS [None]
  - VOMITING [None]
